FAERS Safety Report 5829837-9 (Version None)
Quarter: 2008Q3

REPORT INFORMATION
  Report Type: 
  Country: None (occurrence: None)
  Receive Date: 20080801
  Receipt Date: 20080724
  Transmission Date: 20090109
  Serious: Yes (Hospitalization)
  Sender: FDA-Public Use
  Company Number: SE-ABBOTT-08P-150-0450841-00

PATIENT
  Sex: Male

DRUGS (4)
  1. HUMIRA [Suspect]
     Indication: RHEUMATOID ARTHRITIS
     Dosage: 40 MG WHEN NEEDED
     Route: 058
     Dates: start: 20040414, end: 20080502
  2. PARACETAMOL [Concomitant]
     Indication: DRUG USE FOR UNKNOWN INDICATION
     Dosage: 500 MG UNIT DOSE
     Route: 048
  3. TRAMADOL HYDROCHLORIDE [Concomitant]
     Indication: DRUG USE FOR UNKNOWN INDICATION
     Dosage: 50 MG UNIT DOSE
     Route: 048
  4. LEFLUNOMIDE [Concomitant]
     Indication: DRUG USE FOR UNKNOWN INDICATION
     Dosage: 20 MG UNIT DOSE
     Route: 048

REACTIONS (6)
  - ALPHA-1 ANTI-TRYPSIN DEFICIENCY [None]
  - BENIGN RESPIRATORY TRACT NEOPLASM [None]
  - EMPHYSEMA [None]
  - INFLAMMATION [None]
  - PLEURAL FIBROSIS [None]
  - PULMONARY FIBROSIS [None]
